FAERS Safety Report 7267096-3 (Version None)
Quarter: 2011Q1

REPORT INFORMATION
  Report Type: 
  Country: None (occurrence: None)
  Receive Date: 20110201
  Receipt Date: 20110124
  Transmission Date: 20110831
  Serious: Yes (Death, Other)
  Sender: FDA-Public Use
  Company Number: PHHY2011DE05891

PATIENT
  Age: 66 Year
  Sex: Male

DRUGS (3)
  1. PREDNISOLONE [Suspect]
     Indication: IMMUNOSUPPRESSANT DRUG THERAPY
  2. CYCLOSPORINE [Suspect]
     Indication: RENAL TRANSPLANT
  3. AZATHIOPRINE [Suspect]
     Indication: IMMUNOSUPPRESSANT DRUG THERAPY

REACTIONS (15)
  - GLIOBLASTOMA MULTIFORME [None]
  - COLON CANCER [None]
  - NAUSEA [None]
  - RENAL ATROPHY [None]
  - GENERAL PHYSICAL HEALTH DETERIORATION [None]
  - CENTRAL NERVOUS SYSTEM LESION [None]
  - WEIGHT DECREASED [None]
  - DEMENTIA [None]
  - DIARRHOEA [None]
  - SOMNOLENCE [None]
  - NIGHT SWEATS [None]
  - PAIN [None]
  - GASTROINTESTINAL OBSTRUCTION [None]
  - COGNITIVE DISORDER [None]
  - FAECES DISCOLOURED [None]
